FAERS Safety Report 13425625 (Version 1)
Quarter: 2017Q2

REPORT INFORMATION
  Report Type: Spontaneous
  Country: None (occurrence: US)
  Receive Date: 20170410
  Receipt Date: 20170410
  Transmission Date: 20170830
  Serious: Yes (Hospitalization)
  Sender: FDA-Public Use
  Company Number: None

PATIENT
  Age: 68 Year
  Sex: Male
  Weight: 72.3 kg

DRUGS (10)
  1. LEVOTHYROXINE. [Concomitant]
     Active Substance: LEVOTHYROXINE
  2. EMLA [Concomitant]
     Active Substance: LIDOCAINE\PRILOCAINE
  3. IPRATROPIUM BROMIDE. [Concomitant]
     Active Substance: IPRATROPIUM BROMIDE
  4. LEXAPRO [Concomitant]
     Active Substance: ESCITALOPRAM OXALATE
  5. ZOFRAN [Concomitant]
     Active Substance: ONDANSETRON HYDROCHLORIDE
  6. COMPAZINE [Concomitant]
     Active Substance: PROCHLORPERAZINE MALEATE
  7. LOVENOX [Concomitant]
     Active Substance: ENOXAPARIN SODIUM
  8. PREDNISONE. [Concomitant]
     Active Substance: PREDNISONE
  9. DALTEPARIN 150 IU/KG [Suspect]
     Active Substance: DALTEPARIN
     Indication: DEEP VEIN THROMBOSIS
     Route: 058
     Dates: start: 20161122, end: 20170315
  10. REGLAN [Concomitant]
     Active Substance: METOCLOPRAMIDE HYDROCHLORIDE

REACTIONS (11)
  - Dehydration [None]
  - Pneumonia aspiration [None]
  - Muscle haemorrhage [None]
  - Tachycardia [None]
  - Malignant neoplasm progression [None]
  - Haemoglobin decreased [None]
  - Septic shock [None]
  - Pericardial effusion [None]
  - Hyperkalaemia [None]
  - Hyponatraemia [None]
  - Pleural effusion [None]

NARRATIVE: CASE EVENT DATE: 20170312
